FAERS Safety Report 6007782-6 (Version None)
Quarter: 2008Q4

REPORT INFORMATION
  Report Type: 
  Country: None (occurrence: None)
  Receive Date: 20081217
  Receipt Date: 20080606
  Transmission Date: 20090506
  Serious: No
  Sender: FDA-Public Use
  Company Number: US-ASTRAZENECA-2008UW11419

PATIENT
  Age: 78 Year
  Sex: Female
  Weight: 59 kg

DRUGS (18)
  1. CRESTOR [Suspect]
     Indication: BLOOD CHOLESTEROL
     Dosage: 5 MG
     Route: 048
  2. NEXIUM [Concomitant]
     Route: 048
  3. NORVASC [Concomitant]
  4. LEVOXYL [Concomitant]
  5. SINGULAIR [Concomitant]
  6. FLONASE [Concomitant]
  7. ALLEGRA [Concomitant]
  8. ASTELIN [Concomitant]
     Route: 045
  9. BENTYL [Concomitant]
  10. CALCIUM [Concomitant]
  11. VITAMIN D [Concomitant]
  12. ACYCLOVIR [Concomitant]
  13. FOLIC ACID [Concomitant]
  14. IMODIUM A-D [Concomitant]
  15. METAMUCIL [Concomitant]
  16. MOBIC [Concomitant]
  17. PREMARIN [Concomitant]
  18. PREBAC [Concomitant]

REACTIONS (5)
  - ASTHENIA [None]
  - DRUG INTOLERANCE [None]
  - GASTROENTERITIS [None]
  - GASTROINTESTINAL INFECTION [None]
  - MYALGIA [None]
